FAERS Safety Report 6025627-5 (Version None)
Quarter: 2008Q4

REPORT INFORMATION
  Report Type: 
  Country: None (occurrence: None)
  Receive Date: 20081231
  Receipt Date: 20081211
  Transmission Date: 20090506
  Serious: No
  Sender: FDA-Public Use
  Company Number: US-B.I. PHARMACEUTICALS,INC./RIDGEFIELD-2008-BP-18544BP

PATIENT
  Age: 44 Year
  Sex: Male

DRUGS (2)
  1. FLOMAX [Suspect]
     Dosage: .4MG
     Dates: start: 20081209
  2. TARKA [Concomitant]
     Indication: HYPERTENSION

REACTIONS (3)
  - FATIGUE [None]
  - INSOMNIA [None]
  - NERVOUSNESS [None]
